FAERS Safety Report 8790389 (Version 1)
Quarter: 2012Q4

REPORT INFORMATION
  Report Type: Report from Study
  Country: CA (occurrence: CA)
  Receive Date: 20120917
  Receipt Date: 20120917
  Transmission Date: 20130627
  Serious: Yes (Other)
  Sender: FDA-Public Use
  Company Number: CA-JNJFOC-20120805825

PATIENT
  Age: 65 Year
  Sex: Female
  Weight: 79.3 kg

DRUGS (8)
  1. REMICADE [Suspect]
     Indication: RHEUMATOID ARTHRITIS
     Route: 042
     Dates: start: 20050504
  2. PREDNISONE [Concomitant]
     Route: 065
  3. METHOTREXATE [Concomitant]
     Route: 065
  4. MORPHINE [Concomitant]
     Route: 065
  5. DOMPERIDONE [Concomitant]
     Route: 065
  6. FOLIC ACID [Concomitant]
     Route: 065
  7. INHALER NOS [Concomitant]
     Route: 065
  8. ELAVIL [Concomitant]
     Route: 065

REACTIONS (3)
  - Pneumonia [Recovering/Resolving]
  - Aortic aneurysm [Unknown]
  - Bronchitis [Recovering/Resolving]
